FAERS Safety Report 8116732-8 (Version None)
Quarter: 2012Q1

REPORT INFORMATION
  Report Type: 
  Country: None (occurrence: None)
  Receive Date: 20120131
  Receipt Date: 20111017
  Transmission Date: 20120608
  Serious: Yes (Hospitalization)
  Sender: FDA-Public Use
  Company Number: JP-2011-10231

PATIENT
  Age: 60 Year
  Sex: Male
  Weight: 62.4 kg

DRUGS (13)
  1. SELBEX (TEPRENONE) [Concomitant]
  2. AMINOLEBAN EN (ALANINE, ARGININE HYDROCHLORIDE, GLYCINE, ISOLEUCINE, M [Concomitant]
  3. KETOPROFEN [Concomitant]
  4. FAMOTIDINE [Concomitant]
  5. POSTERISAN (ESCHERICHIA COLI, LYOPHILIZED, PHENOL) [Concomitant]
  6. SHAKUYAKUKANZOUTOU (HERBAL EXTRACT NOS) [Concomitant]
  7. URSO 250 [Concomitant]
  8. CLARITIN REDITABS [Concomitant]
  9. OPC-41061 (TOLVAPTAN) TABLET [Suspect]
     Indication: HEPATIC CIRRHOSIS
     Dosage: 7.5 MG MILLIGRAM(S), DAILY DOSE, ORAL
     Route: 048
     Dates: start: 20110202, end: 20110205
  10. LASIX [Concomitant]
  11. ALDACTONE [Concomitant]
  12. MAGMITT (MAGNESIUM OXIDE) [Concomitant]
  13. LIVACT (ISOLEUCINE, LEUCINE, VALINE) [Concomitant]

REACTIONS (4)
  - HEPATIC ENCEPHALOPATHY [None]
  - DEHYDRATION [None]
  - PLEURAL EFFUSION [None]
  - BLOOD UREA INCREASED [None]
